FAERS Safety Report 5036292-8 (Version None)
Quarter: 2006Q2

REPORT INFORMATION
  Report Type: 
  Country: None (occurrence: None)
  Receive Date: 20060601
  Receipt Date: 20060221
  Transmission Date: 20061013
  Serious: No
  Sender: FDA-Public Use
  Company Number: US200512001000

PATIENT
  Age: 57 Year
  Sex: Female

DRUGS (2)
  1. CYMBALTA [Suspect]
     Dosage: ORAL
     Route: 048
  2. IRON (IRON) [Concomitant]

REACTIONS (1)
  - FAECES DISCOLOURED [None]
